FAERS Safety Report 9061610 (Version 1)
Quarter: 2013Q1

REPORT INFORMATION
  Report Type: Spontaneous
  Country: US (occurrence: None)
  Receive Date: 20130208
  Receipt Date: 20130208
  Transmission Date: 20140127
  Serious: Yes (Life-Threatening, Disabling)
  Sender: FDA-Public Use
  Company Number: None

PATIENT
  Age: 56 Year
  Sex: Male
  Weight: 145.15 kg

DRUGS (1)
  1. ETHICON VINYL MESH [Suspect]
     Dates: start: 20050919, end: 20130206

REACTIONS (6)
  - Device failure [None]
  - Impaired healing [None]
  - Post procedural infection [None]
  - Wound secretion [None]
  - Swelling [None]
  - Abdominal pain [None]
